FAERS Safety Report 15493027 (Version 1)
Quarter: 2018Q4

REPORT INFORMATION
  Report Type: Spontaneous
  Country: US (occurrence: US)
  Receive Date: 20181004
  Receipt Date: 20181004
  Transmission Date: 20190205
  Serious: Yes (Other)
  Sender: FDA-Public Use
  Company Number: None

PATIENT
  Age: 60 Year
  Sex: Female

DRUGS (1)
  1. BASAGLAR [Suspect]
     Active Substance: INSULIN GLARGINE
     Indication: DIABETES MELLITUS
     Dosage: ?          QUANTITY:1 DF DOSAGE FORM;?
     Route: 058
     Dates: start: 20180410, end: 20181004

REACTIONS (5)
  - Hypoglycaemia [None]
  - Glycosylated haemoglobin increased [None]
  - Upper respiratory tract infection [None]
  - Insurance issue [None]
  - Therapy change [None]

NARRATIVE: CASE EVENT DATE: 20180420
